FAERS Safety Report 10019434 (Version 5)
Quarter: 2014Q2

REPORT INFORMATION
  Report Type: Report from Study
  Country: ES (occurrence: ES)
  Receive Date: 20140318
  Receipt Date: 20140516
  Transmission Date: 20141212
  Serious: Yes (Hospitalization)
  Sender: FDA-Public Use
  Company Number: ES-BRISTOL-MYERS SQUIBB COMPANY-20458782

PATIENT
  Age: 76 Year
  Sex: Male

DRUGS (10)
  1. BLINDED: IPILIMUMAB [Suspect]
     Indication: SMALL CELL LUNG CANCER
     Route: 042
     Dates: start: 20140127
  2. ETOPOSIDE [Suspect]
     Indication: SMALL CELL LUNG CANCER
     Route: 042
     Dates: start: 20131202
  3. CARBOPLATIN [Suspect]
     Indication: SMALL CELL LUNG CANCER
     Route: 042
     Dates: start: 20131202
  4. BLINDED: PLACEBO [Suspect]
     Indication: SMALL CELL LUNG CANCER
     Route: 042
     Dates: start: 20140127
  5. OMEPRAZOLE [Concomitant]
     Dates: start: 20131128
  6. FUROSEMIDE [Concomitant]
     Dates: start: 20131128
  7. BISOPROLOL [Concomitant]
     Dates: start: 20131128, end: 20140119
  8. SIMVASTATIN [Concomitant]
     Dates: start: 20110930
  9. BUDESONIDE [Concomitant]
     Dates: start: 20131128
  10. IPRATROPIUM BROMIDE [Concomitant]
     Dates: start: 20131128

REACTIONS (1)
  - Colitis [Recovered/Resolved]
